FAERS Safety Report 5307022-7 (Version None)
Quarter: 2007Q2

REPORT INFORMATION
  Report Type: 
  Country: None (occurrence: None)
  Receive Date: 20070420
  Receipt Date: 20070420
  Transmission Date: 20071010
  Serious: Yes (Other)
  Sender: FDA-Public Use
  Company Number: None

PATIENT
  Sex: Male
  Weight: 92.5338 kg

DRUGS (10)
  1. PLAQUENIL [Suspect]
     Dosage: 200 MG 2 Q D
     Dates: start: 19950101
  2. BENEMID [Concomitant]
  3. PAXIL [Concomitant]
  4. PLAVIX [Concomitant]
  5. ASPIRIN [Concomitant]
  6. COREG [Concomitant]
  7. VERAPAMIL [Concomitant]
  8. LISINOPRIL [Concomitant]
  9. LIPITOR [Concomitant]
  10. ZETIA [Concomitant]

REACTIONS (2)
  - SCOTOMA [None]
  - SUDDEN ONSET OF SLEEP [None]
